FAERS Safety Report 25765922 (Version 1)
Quarter: 2025Q3

REPORT INFORMATION
  Report Type: Spontaneous
  Country: US (occurrence: US)
  Receive Date: 20250905
  Receipt Date: 20250905
  Transmission Date: 20251020
  Serious: No
  Sender: DOMPE FARMACEUTICI
  Company Number: US-FARMAPROD-202407-2657

PATIENT
  Sex: Male

DRUGS (10)
  1. OXERVATE [Suspect]
     Active Substance: CENEGERMIN-BKBJ
     Indication: Neurotrophic keratopathy
     Route: 047
     Dates: start: 20220405, end: 20220531
  2. OXERVATE [Suspect]
     Active Substance: CENEGERMIN-BKBJ
     Route: 047
     Dates: start: 20240708
  3. OXERVATE [Suspect]
     Active Substance: CENEGERMIN-BKBJ
  4. DOXYCYCLINE HYCLATE [Concomitant]
     Active Substance: DOXYCYCLINE HYCLATE
  5. IYUZEH [Concomitant]
     Active Substance: LATANOPROST
  6. MURO 128 [Concomitant]
     Active Substance: SODIUM CHLORIDE
  7. LOTEMAX [Concomitant]
     Active Substance: LOTEPREDNOL ETABONATE
  8. RESTASIS [Concomitant]
     Active Substance: CYCLOSPORINE
  9. CIPROFLOXACIN-DEXAMETHASONE [Concomitant]
  10. CELLCEPT [Concomitant]
     Active Substance: MYCOPHENOLATE MOFETIL

REACTIONS (4)
  - Wrong technique in product usage process [Unknown]
  - Accidental overdose [Unknown]
  - Eye pain [Unknown]
  - Pancreatic disorder [Unknown]
